FAERS Safety Report 4852963-8 (Version None)
Quarter: 2005Q4

REPORT INFORMATION
  Report Type: 
  Country: None (occurrence: None)
  Receive Date: 20051212
  Receipt Date: 20051128
  Transmission Date: 20060501
  Serious: Yes (Other)
  Sender: FDA-Public Use
  Company Number: 2005S1000339

PATIENT
  Age: 49 Year
  Sex: Female

DRUGS (3)
  1. SORIATANE [Suspect]
     Indication: PSORIASIS
     Dosage: 25 MG; QD; PO
     Route: 048
     Dates: start: 20020101
  2. MAGNESIUM PIDOLATE [Concomitant]
  3. GINKO BILOBA [Concomitant]

REACTIONS (3)
  - MYOPIA [None]
  - PRESBYOPIA [None]
  - VISUAL ACUITY REDUCED [None]
